FAERS Safety Report 6672130-5 (Version None)
Quarter: 2010Q2

REPORT INFORMATION
  Report Type: 
  Country: None (occurrence: None)
  Receive Date: 20100407
  Receipt Date: 20100407
  Transmission Date: 20101027
  Serious: Yes (Hospitalization)
  Sender: FDA-Public Use
  Company Number: None

PATIENT
  Age: 53 Year
  Sex: Male
  Weight: 91 kg

DRUGS (1)
  1. LEVOFLOXACIN [Suspect]
     Indication: BACTERAEMIA
     Dosage: 750MG DAILY PO
     Route: 048
     Dates: start: 20090220, end: 20090304

REACTIONS (2)
  - DYSPNOEA [None]
  - HAEMOLYTIC ANAEMIA [None]
